FAERS Safety Report 13839153 (Version 1)
Quarter: 2017Q3

REPORT INFORMATION
  Report Type: Spontaneous
  Country: IT (occurrence: IT)
  Receive Date: 20170807
  Receipt Date: 20170807
  Transmission Date: 20171127
  Serious: Yes (Other)
  Sender: FDA-Public Use
  Company Number: IT-LUPIN PHARMACEUTICALS INC.-2017-04293

PATIENT
  Age: 78 Year
  Sex: Male

DRUGS (1)
  1. IRBESARTAN. [Suspect]
     Active Substance: IRBESARTAN
     Indication: RENIN-ANGIOTENSIN SYSTEM INHIBITION
     Dosage: UNK
     Route: 065

REACTIONS (2)
  - Coeliac disease [Recovered/Resolved]
  - Renal failure [Unknown]
